FAERS Safety Report 11897132 (Version 1)
Quarter: 2016Q1

REPORT INFORMATION
  Report Type: Spontaneous
  Country: US (occurrence: US)
  Receive Date: 20160107
  Receipt Date: 20160107
  Transmission Date: 20160526
  Serious: No
  Sender: FDA-Public Use
  Company Number: US-SHIRE-US201600117

PATIENT
  Sex: Female

DRUGS (1)
  1. PENTASA [Suspect]
     Active Substance: MESALAMINE
     Indication: EXPOSURE DURING BREAST FEEDING
     Dosage: UNK, UNKNOWN
     Route: 048

REACTIONS (1)
  - Exposure during breast feeding [Unknown]
